FAERS Safety Report 4554459-X (Version None)
Quarter: 2004Q4

REPORT INFORMATION
  Report Type: 
  Country: None (occurrence: None)
  Receive Date: 20041227
  Receipt Date: 20041014
  Transmission Date: 20050328
  Serious: Yes (Death)
  Sender: FDA-Public Use
  Company Number: 04P-163-0269609-00

PATIENT
  Age: 78 Year
  Sex: Female

DRUGS (5)
  1. HUMIRA [Suspect]
     Indication: RHEUMATOID ARTHRITIS
     Dosage: 40 M G, 1 IN 2 WK, SUBCUTANEOUS
     Route: 058
     Dates: start: 20030901, end: 20040427
  2. LEXAPRO [Concomitant]
  3. CALCITONIN-SALMON [Concomitant]
  4. RANITIDINE HYDROCHLORIDE [Concomitant]
  5. DYAZIDE [Concomitant]

REACTIONS (1)
  - DEATH [None]
